FAERS Safety Report 13444950 (Version 5)
Quarter: 2022Q3

REPORT INFORMATION
  Report Type: Report from Study
  Country: GB (occurrence: GB)
  Receive Date: 20170414
  Receipt Date: 20220920
  Transmission Date: 20221027
  Serious: Yes (Hospitalization)
  Sender: FDA-Public Use
  Company Number: GB-BRISTOL-MYERS SQUIBB COMPANY-BMS-2017-031224

PATIENT
  Age: 82 Year
  Sex: Male
  Weight: 65.699 kg

DRUGS (11)
  1. IPILIMUMAB [Suspect]
     Active Substance: IPILIMUMAB
     Indication: Neuroendocrine carcinoma of the skin
     Dosage: DOSE DELAYED
     Route: 042
     Dates: start: 20170330
  2. BISOPROLOL [Concomitant]
     Active Substance: BISOPROLOL
     Indication: Product used for unknown indication
     Dosage: 2.5 MG, QD
     Route: 048
  3. FERROUS FUMARATE [Concomitant]
     Active Substance: FERROUS FUMARATE
     Indication: Product used for unknown indication
     Dosage: 2 TAB, QD
     Route: 065
  4. FINASTERIDE [Concomitant]
     Active Substance: FINASTERIDE
     Indication: Product used for unknown indication
     Route: 048
  5. POLYETHYLENE GLYCOL 3350\POTASSIUM CHLORIDE\SODIUM BICARBONATE\SODIUM [Concomitant]
     Active Substance: POLYETHYLENE GLYCOL 3350\POTASSIUM CHLORIDE\SODIUM BICARBONATE\SODIUM CHLORIDE
     Indication: Product used for unknown indication
     Dosage: 1 TAB QD
     Route: 065
  6. MORPHINE SULFATE [Concomitant]
     Active Substance: MORPHINE SULFATE
     Indication: Product used for unknown indication
     Dosage: 2.5 MG, PRN
     Route: 065
  7. ACETAMINOPHEN [Concomitant]
     Active Substance: ACETAMINOPHEN
     Indication: Product used for unknown indication
     Dosage: UNK
     Route: 065
  8. WARFARIN [Concomitant]
     Active Substance: WARFARIN
     Indication: Product used for unknown indication
     Dosage: 4 MG, QD
     Route: 065
  9. SODIUM [Concomitant]
     Active Substance: SODIUM
     Indication: Product used for unknown indication
     Dosage: UNK
     Route: 065
  10. FRAGMIN [Concomitant]
     Active Substance: DALTEPARIN SODIUM
     Indication: Product used for unknown indication
     Dosage: 1200 UNIT, QD
     Route: 058
  11. VITAMIN D3 [Concomitant]
     Active Substance: CHOLECALCIFEROL
     Indication: Product used for unknown indication
     Route: 048

REACTIONS (1)
  - Oedema peripheral [Recovered/Resolved]

NARRATIVE: CASE EVENT DATE: 20170407
